FAERS Safety Report 7528317-2 (Version None)
Quarter: 2011Q2

REPORT INFORMATION
  Report Type: 
  Country: None (occurrence: None)
  Receive Date: 20110607
  Receipt Date: 20110527
  Transmission Date: 20111010
  Serious: Yes (Hospitalization)
  Sender: FDA-Public Use
  Company Number: TR-US-EMD SERONO, INC.-7062953

PATIENT
  Sex: Male
  Weight: 55 kg

DRUGS (9)
  1. SUSKALIN [Concomitant]
  2. REBIF [Suspect]
     Indication: RELAPSING-REMITTING MULTIPLE SCLEROSIS
     Route: 058
     Dates: start: 20040101, end: 20110101
  3. LEVONTRION [Concomitant]
  4. ZOPROL [Concomitant]
  5. CALCIUM CARBONATE [Concomitant]
  6. RIOKSEL [Concomitant]
  7. ESCITALOPRAM [Concomitant]
  8. ENDOL [Concomitant]
  9. REOUIP [Concomitant]

REACTIONS (1)
  - TUBERCULOSIS [None]
